FAERS Safety Report 15940809 (Version 1)
Quarter: 2019Q1

REPORT INFORMATION
  Report Type: Report from Study
  Country: IT (occurrence: IT)
  Receive Date: 20190208
  Receipt Date: 20190208
  Transmission Date: 20190417
  Serious: Yes (Other)
  Sender: FDA-Public Use
  Company Number: IT-EISAI MEDICAL RESEARCH-EC-2019-051632

PATIENT
  Age: 12 Year
  Sex: Female
  Weight: 32 kg

DRUGS (4)
  1. INOVELON [Suspect]
     Active Substance: RUFINAMIDE
     Route: 048
     Dates: start: 20190201, end: 20190203
  2. PHENOBARBITAL. [Concomitant]
     Active Substance: PHENOBARBITAL
  3. INOVELON [Suspect]
     Active Substance: RUFINAMIDE
     Indication: EPILEPTIC ENCEPHALOPATHY
     Route: 048
     Dates: start: 20190115, end: 20190131
  4. LEVETIRACETAM. [Concomitant]
     Active Substance: LEVETIRACETAM

REACTIONS (2)
  - Face oedema [Recovered/Resolved]
  - Rash vesicular [Recovered/Resolved]

NARRATIVE: CASE EVENT DATE: 20190129
